FAERS Safety Report 20517831 (Version 1)
Quarter: 2022Q1

REPORT INFORMATION
  Report Type: Spontaneous
  Country: US (occurrence: None)
  Receive Date: 20220224
  Receipt Date: 20220224
  Transmission Date: 20220423
  Serious: No
  Sender: FDA-Public Use
  Company Number: None

PATIENT
  Age: 66 Year
  Sex: Male

DRUGS (2)
  1. APIXABAN [Suspect]
     Active Substance: APIXABAN
     Dosage: FREQUENCY : TWICE A DAY;?
     Route: 048
  2. TICAGRELOR [Suspect]
     Active Substance: TICAGRELOR
     Dosage: FREQUENCY : DAILY;?
     Route: 048

REACTIONS (3)
  - Gastric haemorrhage [None]
  - Coronary artery stenosis [None]
  - Coronary artery stenosis [None]

NARRATIVE: CASE EVENT DATE: 20210519
